FAERS Safety Report 8233987-X (Version None)
Quarter: 2012Q1

REPORT INFORMATION
  Report Type: 
  Country: None (occurrence: None)
  Receive Date: 20120323
  Receipt Date: 20120315
  Transmission Date: 20120608
  Serious: Yes (Death)
  Sender: FDA-Public Use
  Company Number: DSA_55703_2012

PATIENT
  Sex: Male

DRUGS (2)
  1. XENAZINE [Suspect]
     Indication: EXTRAPYRAMIDAL DISORDER
     Dosage: 25 MG BID ORAL
     Route: 048
     Dates: start: 20100202, end: 20120202
  2. XENAZINE [Suspect]
     Indication: DYSKINESIA
     Dosage: 25 MG BID ORAL
     Route: 048
     Dates: start: 20100202, end: 20120202

REACTIONS (1)
  - DEATH [None]
